FAERS Safety Report 20910111 (Version 1)
Quarter: 2022Q2

REPORT INFORMATION
  Report Type: Spontaneous
  Country: US (occurrence: None)
  Receive Date: 20220602
  Receipt Date: 20220602
  Transmission Date: 20220721
  Serious: No
  Sender: FDA-Public Use
  Company Number: None

PATIENT
  Sex: Female

DRUGS (1)
  1. IBRANCE [Suspect]
     Active Substance: PALBOCICLIB
     Indication: Breast cancer
     Dosage: FREQUENCY : DAILY;  FOR 21 DAYS?
     Route: 048
     Dates: start: 20220506

REACTIONS (4)
  - Hypoaesthesia [None]
  - Arthralgia [None]
  - Arthralgia [None]
  - Neuropathy peripheral [None]
